FAERS Safety Report 4803628-X (Version None)
Quarter: 2005Q4

REPORT INFORMATION
  Report Type: 
  Country: None (occurrence: None)
  Receive Date: 20051014
  Receipt Date: 20050928
  Transmission Date: 20060501
  Serious: Yes (Other)
  Sender: FDA-Public Use
  Company Number: 2005EN000402

PATIENT
  Age: 30 Year
  Sex: Male

DRUGS (1)
  1. ABELCET [Suspect]
     Dosage: 1 MG/KG; IV
     Route: 042

REACTIONS (4)
  - ASPERGILLOSIS [None]
  - BONE MARROW TRANSPLANT [None]
  - NEPHROGENIC DIABETES INSIPIDUS [None]
  - PULMONARY MYCOSIS [None]
